FAERS Safety Report 23350143 (Version 1)
Quarter: 2023Q4

REPORT INFORMATION
  Report Type: Spontaneous
  Country: ES (occurrence: ES)
  Receive Date: 20231229
  Receipt Date: 20231229
  Transmission Date: 20240110
  Serious: Yes (Other)
  Sender: FDA-Public Use
  Company Number: ES-Merck Healthcare KGaA-2023496619

PATIENT
  Age: 4 Month

DRUGS (2)
  1. EUTHYROX [Suspect]
     Active Substance: LEVOTHYROXINE SODIUM
     Indication: Product used for unknown indication
     Dosage: 100 (UNIT NOT REPORTED)
     Dates: start: 2010
  2. EUTHYROX [Suspect]
     Active Substance: LEVOTHYROXINE SODIUM
     Dosage: 75 (UNIT NOT REPORTED)

REACTIONS (7)
  - Haematochezia [Unknown]
  - Flatulence [Unknown]
  - Discomfort [Unknown]
  - Gastrooesophageal reflux disease [Unknown]
  - Diarrhoea [Unknown]
  - Hypersensitivity [Unknown]
  - Maternal exposure during breast feeding [Unknown]
